FAERS Safety Report 17549341 (Version 2)
Quarter: 2020Q2

REPORT INFORMATION
  Report Type: Spontaneous
  Country: US (occurrence: US)
  Receive Date: 20200317
  Receipt Date: 20200415
  Transmission Date: 20200713
  Serious: Yes (Other)
  Sender: FDA-Public Use
  Company Number: US-BAYER-2020-045767

PATIENT
  Age: 21 Year
  Sex: Female
  Weight: 55.78 kg

DRUGS (1)
  1. KYLEENA [Suspect]
     Active Substance: LEVONORGESTREL
     Indication: CONTRACEPTION
     Dosage: 17.5 ?G PER DAY CONTINUOUSLY
     Route: 015
     Dates: start: 20200109, end: 20200312

REACTIONS (3)
  - Vaginal haemorrhage [None]
  - Uterine perforation [Recovering/Resolving]
  - Pelvic pain [None]

NARRATIVE: CASE EVENT DATE: 202003
